FAERS Safety Report 5585796-8 (Version None)
Quarter: 2008Q1

REPORT INFORMATION
  Report Type: 
  Country: None (occurrence: None)
  Receive Date: 20080109
  Receipt Date: 20071214
  Transmission Date: 20080703
  Serious: No
  Sender: FDA-Public Use
  Company Number: US-BAYER-200713402BCC

PATIENT
  Age: 34 Year
  Sex: Female
  Weight: 113 kg

DRUGS (2)
  1. ALEVE [Suspect]
     Indication: BACK PAIN
     Dosage: TOTAL DAILY DOSE: 220 MG  UNIT DOSE: 220 MG
     Route: 048
     Dates: start: 20071017, end: 20071017
  2. NASONEX [Concomitant]

REACTIONS (2)
  - DRY MOUTH [None]
  - THIRST [None]
